FAERS Safety Report 9911216 (Version 1)
Quarter: 2014Q1

REPORT INFORMATION
  Report Type: Spontaneous
  Country: FR (occurrence: FR)
  Receive Date: 20140219
  Receipt Date: 20140219
  Transmission Date: 20141002
  Serious: Yes (Hospitalization)
  Sender: FDA-Public Use
  Company Number: FR-SA-2014SA015561

PATIENT
  Age: 72 Year
  Sex: Male

DRUGS (9)
  1. THIOCOLCHICOSIDE [Suspect]
     Indication: NECK PAIN
     Dosage: DOSE:2 UNIT(S)
     Route: 048
     Dates: start: 20131221, end: 20131223
  2. ZOLPIDEM [Suspect]
     Indication: PRODUCT USED FOR UNKNOWN INDICATION
     Dosage: DOSE:1 UNIT(S)
     Route: 048
     Dates: end: 20131222
  3. LERCAN [Suspect]
     Indication: HYPERTENSION
     Route: 048
     Dates: end: 20131224
  4. TOPALGIC [Suspect]
     Indication: PAIN
     Dosage: DAILY DOSE:4 UNIT(S)
     Route: 048
     Dates: start: 20131218, end: 20131223
  5. TOPALGIC LP [Suspect]
     Indication: PAIN
     Dosage: DOSE:2 UNIT(S)
     Route: 048
     Dates: start: 20131221, end: 20131223
  6. COVERSYL [Suspect]
     Indication: HYPERTENSION
     Dosage: DOSE:1 UNIT(S)
     Route: 048
     Dates: end: 20131222
  7. DAFALGAN [Suspect]
     Indication: PRODUCT USED FOR UNKNOWN INDICATION
     Route: 048
     Dates: start: 20131221, end: 20131223
  8. FRAGMIN [Concomitant]
  9. IXPRIM [Concomitant]
     Dates: start: 20131206

REACTIONS (4)
  - Renal failure [Recovered/Resolved]
  - Dehydration [Recovered/Resolved]
  - Diarrhoea [Recovered/Resolved]
  - Vomiting [Recovered/Resolved]
